FAERS Safety Report 7921935-9 (Version None)
Quarter: 2011Q4

REPORT INFORMATION
  Report Type: 
  Country: None (occurrence: None)
  Receive Date: 20111117
  Receipt Date: 20111011
  Transmission Date: 20120403
  Serious: Yes (Hospitalization)
  Sender: FDA-Public Use
  Company Number: JP-ROCHE-535714

PATIENT
  Sex: Female
  Weight: 31.8 kg

DRUGS (7)
  1. MEFRUSIDE [Concomitant]
     Dosage: STARTED PRIOR TO THE STUDY
     Route: 048
  2. VALSARTAN [Concomitant]
     Dosage: STARTED PRIOR TO THE STUDY
     Route: 048
  3. SCOPOLAMINE BUTYLBROMIDE [Concomitant]
  4. BLINDED RISEDRONIC ACID [Suspect]
     Indication: OSTEOPOROSIS
     Dosage: DOSE: BLINDED
     Route: 048
     Dates: start: 20071109, end: 20071207
  5. BONIVA [Suspect]
     Indication: OSTEOPOROSIS
     Dosage: DOSE: BLINDED, DOSAGE FORM REPORTED AS INFUSION.
     Route: 042
     Dates: start: 20071109, end: 20071109
  6. AMLODIPINE BESYLATE [Concomitant]
     Dosage: STARTED PRIOR TO THE STUDY
     Route: 048
  7. CALCIUM/VITAMIN D [Concomitant]
     Dosage: CALCIUM: 305 MG PER DAY, VIT D3: 200 IU PER DAY
     Route: 048
     Dates: start: 20071109, end: 20071207

REACTIONS (1)
  - GASTRIC ULCER [None]
